FAERS Safety Report 7936429-4 (Version None)
Quarter: 2011Q4

REPORT INFORMATION
  Report Type: 
  Country: None (occurrence: None)
  Receive Date: 20111123
  Receipt Date: 20111114
  Transmission Date: 20120403
  Serious: Yes (Hospitalization)
  Sender: FDA-Public Use
  Company Number: US-BAYER-2011-020438

PATIENT
  Age: 21 Year
  Sex: Female
  Weight: 58.957 kg

DRUGS (6)
  1. YAZ [Suspect]
     Indication: MENSTRUATION IRREGULAR
  2. YAZ [Suspect]
     Indication: CONTRACEPTION
     Dosage: UNK
     Route: 048
     Dates: start: 20070901, end: 20100601
  3. YAZ [Suspect]
     Indication: PREMENSTRUAL SYNDROME
  4. ZOLOFT [Concomitant]
     Dosage: 50 MG, QD
  5. EXCEDRIN (MIGRAINE) [Concomitant]
  6. LAMICTAL [Concomitant]
     Dosage: 200 MG, QD

REACTIONS (6)
  - CHOLECYSTITIS CHRONIC [None]
  - CHOLELITHIASIS [None]
  - ABDOMINAL PAIN [None]
  - GALLBLADDER INJURY [None]
  - BILE DUCT STONE [None]
  - ABDOMINAL PAIN UPPER [None]
